FAERS Safety Report 12284160 (Version 1)
Quarter: 2016Q2

REPORT INFORMATION
  Report Type: Spontaneous
  Country: CA (occurrence: CA)
  Receive Date: 20160419
  Receipt Date: 20160419
  Transmission Date: 20160815
  Serious: Yes (Hospitalization)
  Sender: FDA-Public Use
  Company Number: CA-ROCHE-1743029

PATIENT
  Age: 74 Year
  Sex: Female
  Weight: 58 kg

DRUGS (8)
  1. CIPRALEX [Concomitant]
     Active Substance: ESCITALOPRAM OXALATE
     Route: 065
  2. PROLIA [Concomitant]
     Active Substance: DENOSUMAB
     Route: 065
  3. CARBOCAL D [Concomitant]
     Active Substance: CALCIUM\VITAMIN D
     Route: 065
  4. VIMOVO [Concomitant]
     Active Substance: ESOMEPRAZOLE MAGNESIUM\NAPROXEN
     Dosage: MODIFIED-RELEASE TABLET
     Route: 065
  5. HALDOL [Suspect]
     Active Substance: HALOPERIDOL
     Indication: AGITATION
     Route: 048
  6. METOPROLOL. [Concomitant]
     Active Substance: METOPROLOL
     Route: 065
  7. CLONAZEPAM. [Suspect]
     Active Substance: CLONAZEPAM
     Indication: INSOMNIA
     Dosage: THERAPY DURATION: 4 YEARS
     Route: 065
  8. OLANZAPINE. [Concomitant]
     Active Substance: OLANZAPINE

REACTIONS (4)
  - Extrapyramidal disorder [Recovered/Resolved]
  - Fall [Unknown]
  - Muscle rigidity [Recovered/Resolved]
  - Off label use [Unknown]
